FAERS Safety Report 7464408-2 (Version None)
Quarter: 2011Q2

REPORT INFORMATION
  Report Type: 
  Country: None (occurrence: None)
  Receive Date: 20110509
  Receipt Date: 20110505
  Transmission Date: 20111010
  Serious: No
  Sender: FDA-Public Use
  Company Number: US-PFIZER INC-2011087646

PATIENT
  Sex: Female
  Weight: 63.492 kg

DRUGS (3)
  1. RELPAX [Suspect]
     Indication: MIGRAINE
     Dosage: 40 MG, AS NEEDED
     Route: 048
     Dates: start: 20060101
  2. ZOLOFT [Concomitant]
     Indication: DEPRESSION
     Dosage: 75 MG, DAILY
     Route: 048
  3. LEVONORGESTREL + ETHINYL ESTRADIOL [Concomitant]
     Indication: ORAL CONTRACEPTION
     Dosage: UNK
     Route: 048

REACTIONS (1)
  - DRUG EFFECT DECREASED [None]
